FAERS Safety Report 9956666 (Version 2)
Quarter: 2014Q1

REPORT INFORMATION
  Report Type: Report from Study
  Country: US (occurrence: US)
  Receive Date: 20140304
  Receipt Date: 20140304
  Transmission Date: 20141002
  Serious: No
  Sender: FDA-Public Use
  Company Number: US-ABBVIE-13P-163-1089343-00

PATIENT
  Age: 45 Year
  Sex: Male

DRUGS (4)
  1. HUMIRA [Suspect]
     Indication: PSORIASIS
     Route: 058
     Dates: start: 20121125, end: 20130520
  2. SINGULAIR [Concomitant]
     Indication: ASTHMA
  3. ADVAIR [Concomitant]
     Indication: ASTHMA
  4. ALLEGRA OTC [Concomitant]
     Indication: HYPERSENSITIVITY
     Dosage: DAILY

REACTIONS (5)
  - Injection site erythema [Recovered/Resolved]
  - Injection site inflammation [Recovered/Resolved]
  - Injection site irritation [Recovered/Resolved]
  - Injection site pruritus [Recovered/Resolved]
  - Hypersensitivity [Recovered/Resolved]
